FAERS Safety Report 13504552 (Version 1)
Quarter: 2017Q2

REPORT INFORMATION
  Report Type: Spontaneous
  Country: US (occurrence: US)
  Receive Date: 20170502
  Receipt Date: 20170502
  Transmission Date: 20170830
  Serious: No
  Sender: FDA-Public Use
  Company Number: US-WARNER CHILCOTT-2016-002471

PATIENT
  Age: 63 Year
  Sex: Female

DRUGS (6)
  1. ALLERGY MEDICATION [Concomitant]
     Active Substance: DIPHENHYDRAMINE HYDROCHLORIDE
     Indication: HYPERSENSITIVITY
     Route: 060
  2. WESTHROID [Concomitant]
     Active Substance: THYROGLOBULIN
  3. BABY ASPIRIN [Concomitant]
     Active Substance: ASPIRIN
     Dosage: 81 MG, QD
     Route: 048
  4. FEMRING [Suspect]
     Active Substance: ESTRADIOL ACETATE
     Indication: MENOPAUSE
     Dosage: 0.05 MG, UNK
     Route: 067
  5. HORMONES [Concomitant]
     Active Substance: UNSPECIFIED INGREDIENT
  6. FLUOXETINE [Concomitant]
     Active Substance: FLUOXETINE HYDROCHLORIDE
     Dosage: 10 MG, QD

REACTIONS (3)
  - Vaginal erosion [Recovered/Resolved]
  - Vaginal haemorrhage [Unknown]
  - Decubitus ulcer [Recovered/Resolved]
